FAERS Safety Report 15393535 (Version 1)
Quarter: 2018Q3

REPORT INFORMATION
  Report Type: Spontaneous
  Country: FR (occurrence: FR)
  Receive Date: 20180917
  Receipt Date: 20180917
  Transmission Date: 20181010
  Serious: Yes (Hospitalization)
  Sender: FDA-Public Use
  Company Number: FR-MYLANLABS-2018M1067452

PATIENT
  Age: 75 Year
  Sex: Male

DRUGS (8)
  1. SIMPONI [Suspect]
     Active Substance: GOLIMUMAB
     Indication: ENTEROCOLITIS HAEMORRHAGIC
     Dosage: 100 MG, UNK
     Route: 042
  2. SIMPONI [Suspect]
     Active Substance: GOLIMUMAB
     Dosage: 200 MG, UNK
     Route: 042
  3. ROWASA [Suspect]
     Active Substance: MESALAMINE
     Indication: COLITIS
     Dosage: 4000 MG, QD
     Route: 048
     Dates: start: 20170530, end: 20170624
  4. ENALAPRIL MALEATE. [Concomitant]
     Active Substance: ENALAPRIL MALEATE
     Indication: HYPERTENSION
     Dosage: DOSAGE FORM: UNSPECIFIED
     Route: 048
  5. NEOMERCAZOLE [Concomitant]
     Active Substance: CARBIMAZOLE
     Dosage: DOSAGE FORM: UNSPECIFIED
     Route: 048
     Dates: start: 20170324
  6. NEOMERCAZOLE [Concomitant]
     Active Substance: CARBIMAZOLE
     Indication: HYPERTHYROIDISM
     Dosage: 10 MG, QD (DOSAGE FORM: UNSPECIFIED)
     Route: 048
     Dates: start: 20170510
  7. ATENOLOL. [Concomitant]
     Active Substance: ATENOLOL
     Indication: HYPERTENSION
     Dosage: DOSAGE FORM: UNSPECIFIED
     Route: 048
  8. LOPERAMIDE [Suspect]
     Active Substance: LOPERAMIDE
     Indication: DIARRHOEA
     Dosage: DOSAGE FORM: UNSPECIFIED, 1 DF ON DEMAND
     Route: 048

REACTIONS (1)
  - Hepatitis cholestatic [Recovering/Resolving]

NARRATIVE: CASE EVENT DATE: 20170624
